FAERS Safety Report 7889601-6 (Version None)
Quarter: 2011Q4

REPORT INFORMATION
  Report Type: 
  Country: None (occurrence: None)
  Receive Date: 20111103
  Receipt Date: 20110720
  Transmission Date: 20120403
  Serious: Yes (Hospitalization)
  Sender: FDA-Public Use
  Company Number: US-BRISTOL-MYERS SQUIBB COMPANY-15913767

PATIENT
  Age: 28 Year
  Sex: Female
  Weight: 59 kg

DRUGS (1)
  1. KENALOG-40 [Suspect]
     Dates: start: 20090828

REACTIONS (1)
  - INJECTION SITE ATROPHY [None]
